FAERS Safety Report 5209186-2 (Version None)
Quarter: 2007Q1

REPORT INFORMATION
  Report Type: 
  Country: None (occurrence: None)
  Receive Date: 20070111
  Receipt Date: 20061227
  Transmission Date: 20070707
  Serious: Yes (Hospitalization)
  Sender: FDA-Public Use
  Company Number: GXBR2006US02227

PATIENT
  Age: 83 Year
  Sex: Female
  Weight: 64.9 kg

DRUGS (8)
  1. SOTALOL (NGX)(SOTALOL)TABLET [Suspect]
     Dosage: 40 MG, BID, ORAL
     Route: 048
  2. CARDIZEM [Concomitant]
  3. COUMADIN [Concomitant]
  4. DIGOXIN [Concomitant]
  5. SINGULAIR [Concomitant]
  6. NEXIUM [Concomitant]
  7. VYTORIN [Concomitant]
  8. NITROGLYCERIN TRANSDERMAL SYSTEM (GLYCERYL TRINITRATE) [Concomitant]

REACTIONS (1)
  - BRONCHITIS [None]
